FAERS Safety Report 12196028 (Version 6)
Quarter: 2016Q3

REPORT INFORMATION
  Report Type: Report from Study
  Country: US (occurrence: US)
  Receive Date: 20160321
  Receipt Date: 20160906
  Transmission Date: 20161109
  Serious: Yes (Hospitalization)
  Sender: FDA-Public Use
  Company Number: US-ACTELION-A-US2015-119636

PATIENT
  Age: 42 Year
  Sex: Female

DRUGS (5)
  1. REVATIO [Concomitant]
     Active Substance: SILDENAFIL CITRATE
  2. VELETRI [Suspect]
     Active Substance: EPOPROSTENOL
     Dosage: 10.13 NG/KG, PER MIN
     Route: 042
     Dates: start: 20151209
  3. VELETRI [Suspect]
     Active Substance: EPOPROSTENOL
     Indication: PULMONARY ARTERIAL HYPERTENSION
     Dosage: 12 NG/KG, PER MIN
     Route: 042
     Dates: start: 20141219
  4. VELETRI [Suspect]
     Active Substance: EPOPROSTENOL
     Dosage: 14 NG/KG, PER MIN
     Route: 042
  5. VELETRI [Suspect]
     Active Substance: EPOPROSTENOL
     Dosage: 12 NG/KG, PER MIN
     Route: 042

REACTIONS (25)
  - Cellulitis [Unknown]
  - Dermatitis contact [Unknown]
  - Device malfunction [Unknown]
  - No adverse event [Unknown]
  - Device occlusion [Unknown]
  - Urticaria [Unknown]
  - Malaise [Unknown]
  - Catheter site related reaction [Recovered/Resolved]
  - Catheter management [Unknown]
  - Hypersensitivity [Recovered/Resolved]
  - Device alarm issue [Unknown]
  - Catheter site erythema [Unknown]
  - Catheter site inflammation [Unknown]
  - Catheter site pain [Unknown]
  - Scar [Unknown]
  - Pyrexia [Recovered/Resolved]
  - Wound haemorrhage [Unknown]
  - Nephrolithiasis [Unknown]
  - Catheter site pruritus [Unknown]
  - Catheter site haemorrhage [Unknown]
  - Catheter site infection [Recovered/Resolved]
  - Catheter site dermatitis [Unknown]
  - Vomiting [Unknown]
  - Catheter site scab [Unknown]
  - Catheter placement [Unknown]
